FAERS Safety Report 6591707-9 (Version None)
Quarter: 2010Q1

REPORT INFORMATION
  Report Type: 
  Country: None (occurrence: None)
  Receive Date: 20100221
  Receipt Date: 20090603
  Transmission Date: 20100710
  Serious: No
  Sender: FDA-Public Use
  Company Number: US-ALLERGAN-0907739US

PATIENT
  Age: 65 Year
  Sex: Female

DRUGS (3)
  1. BOTOX COSMETIC [Suspect]
     Indication: SKIN WRINKLING
     Dosage: 48 UNITS, SINGLE
     Route: 030
     Dates: start: 20090429, end: 20090429
  2. LEVOXYL [Concomitant]
     Dosage: UNK, QD
  3. NEXIUM [Concomitant]
     Dosage: 20 MG, QD

REACTIONS (2)
  - DIPLOPIA [None]
  - WRONG TECHNIQUE IN DRUG USAGE PROCESS [None]
